FAERS Safety Report 25808673 (Version 2)
Quarter: 2025Q4

REPORT INFORMATION
  Report Type: Spontaneous
  Country: EU (occurrence: EU)
  Receive Date: 20250916
  Receipt Date: 20251001
  Transmission Date: 20260117
  Serious: Yes (Other)
  Sender: MYLAN
  Company Number: EU-EVENT-004144

PATIENT
  Age: 80 Year
  Sex: Female

DRUGS (16)
  1. LENALIDOMIDE [Suspect]
     Active Substance: LENALIDOMIDE
     Indication: Diffuse large B-cell lymphoma
     Dosage: UNK, FOR 7 CYCLES
  2. LENALIDOMIDE [Suspect]
     Active Substance: LENALIDOMIDE
     Dosage: UNK, FOR 7 CYCLES
  3. LENALIDOMIDE [Suspect]
     Active Substance: LENALIDOMIDE
     Dosage: UNK, FOR 7 CYCLES
     Route: 065
  4. LENALIDOMIDE [Suspect]
     Active Substance: LENALIDOMIDE
     Dosage: UNK, FOR 7 CYCLES
     Route: 065
  5. LENALIDOMIDE [Suspect]
     Active Substance: LENALIDOMIDE
     Dosage: 10 MILLIGRAM, QOD
  6. LENALIDOMIDE [Suspect]
     Active Substance: LENALIDOMIDE
     Dosage: 10 MILLIGRAM, QOD
  7. LENALIDOMIDE [Suspect]
     Active Substance: LENALIDOMIDE
     Dosage: 10 MILLIGRAM, QOD
     Route: 065
  8. LENALIDOMIDE [Suspect]
     Active Substance: LENALIDOMIDE
     Dosage: 10 MILLIGRAM, QOD
     Route: 065
  9. TAFASITAMAB [Suspect]
     Active Substance: TAFASITAMAB
     Indication: Diffuse large B-cell lymphoma
     Dosage: UNK, FOR 7 CYCLES
  10. TAFASITAMAB [Suspect]
     Active Substance: TAFASITAMAB
     Dosage: UNK, FOR 7 CYCLES
  11. TAFASITAMAB [Suspect]
     Active Substance: TAFASITAMAB
     Dosage: UNK, FOR 7 CYCLES
     Route: 065
  12. TAFASITAMAB [Suspect]
     Active Substance: TAFASITAMAB
     Dosage: UNK, FOR 7 CYCLES
     Route: 065
  13. TAFASITAMAB [Suspect]
     Active Substance: TAFASITAMAB
     Dosage: 10 MILLIGRAM, QOD
  14. TAFASITAMAB [Suspect]
     Active Substance: TAFASITAMAB
     Dosage: 10 MILLIGRAM, QOD
  15. TAFASITAMAB [Suspect]
     Active Substance: TAFASITAMAB
     Dosage: 10 MILLIGRAM, QOD
     Route: 065
  16. TAFASITAMAB [Suspect]
     Active Substance: TAFASITAMAB
     Dosage: 10 MILLIGRAM, QOD
     Route: 065

REACTIONS (9)
  - Hypogammaglobulinaemia [Unknown]
  - Atrial fibrillation [Unknown]
  - Pneumonia [Unknown]
  - Neutropenia [Unknown]
  - Rash [Unknown]
  - Asthenia [Unknown]
  - Constipation [Unknown]
  - Anaemia [Unknown]
  - Lymphopenia [Unknown]
